FAERS Safety Report 21351267 (Version 1)
Quarter: 2022Q3

REPORT INFORMATION
  Report Type: Spontaneous
  Country: CA (occurrence: CA)
  Receive Date: 20220919
  Receipt Date: 20220919
  Transmission Date: 20221027
  Serious: Yes (Hospitalization, Other)
  Sender: FDA-Public Use
  Company Number: CA-ANIPHARMA-2022-CA-001805

PATIENT
  Age: 20 Month
  Sex: Male

DRUGS (1)
  1. MORPHINE SULFATE [Suspect]
     Active Substance: MORPHINE SULFATE
     Indication: Procedural pain
     Dosage: 3 MG TWICE
     Route: 048

REACTIONS (2)
  - Toxic leukoencephalopathy [Recovered/Resolved]
  - Neurodevelopmental disorder [Not Recovered/Not Resolved]
